FAERS Safety Report 8585874-5 (Version None)
Quarter: 2012Q3

REPORT INFORMATION
  Report Type: 
  Country: None (occurrence: None)
  Receive Date: 20120810
  Receipt Date: 20120802
  Transmission Date: 20120928
  Serious: Yes (Other)
  Sender: FDA-Public Use
  Company Number: JP-VERTEX PHARMACEUTICALS INC.-AE-2012-011742

PATIENT
  Age: 71 Year
  Sex: Male

DRUGS (10)
  1. ARTIST [Concomitant]
     Route: 048
  2. SIGMART [Concomitant]
     Route: 048
  3. ASPIRIN [Concomitant]
     Route: 048
  4. RIBAVIRIN [Concomitant]
     Indication: HEPATITIS C
     Route: 048
     Dates: start: 20120612, end: 20120716
  5. PEG-INTRON [Concomitant]
     Indication: HEPATITIS C
     Route: 058
     Dates: start: 20120612, end: 20120628
  6. TELAVIC (TELAPREVIR) [Suspect]
     Indication: HEPATITIS C
     Route: 048
     Dates: start: 20120612
  7. ACECOL [Concomitant]
     Route: 048
  8. PEG-INTRON [Concomitant]
     Route: 058
     Dates: start: 20120703
  9. URSO 250 [Concomitant]
     Route: 048
     Dates: end: 20120717
  10. RIBAVIRIN [Concomitant]
     Route: 048
     Dates: start: 20120717

REACTIONS (1)
  - ERYTHEMA MULTIFORME [None]
